FAERS Safety Report 5667941-9 (Version None)
Quarter: 2008Q1

REPORT INFORMATION
  Report Type: 
  Country: None (occurrence: None)
  Receive Date: 20080315
  Receipt Date: 20080208
  Transmission Date: 20080703
  Serious: No
  Sender: FDA-Public Use
  Company Number: US-ABBOTT-08P-163-0437621-00

PATIENT
  Sex: Female
  Weight: 90.8 kg

DRUGS (4)
  1. HUMIRA [Suspect]
     Indication: RHEUMATOID ARTHRITIS
     Route: 058
     Dates: start: 20071101, end: 20071201
  2. HUMIRA [Suspect]
     Route: 058
     Dates: start: 20071201
  3. MELOXICAM [Concomitant]
     Indication: RHEUMATOID ARTHRITIS
  4. PREGABALIN [Concomitant]
     Indication: FIBROMYALGIA

REACTIONS (4)
  - DRUG INEFFECTIVE [None]
  - INJECTION SITE IRRITATION [None]
  - JOINT SWELLING [None]
  - PAIN [None]
